FAERS Safety Report 23914208 (Version 2)
Quarter: 2024Q2

REPORT INFORMATION
  Report Type: Spontaneous
  Country: JP (occurrence: JP)
  Receive Date: 20240529
  Receipt Date: 20240605
  Transmission Date: 20240716
  Serious: Yes (Death, Other)
  Sender: FDA-Public Use
  Company Number: JP-MTPC-MTPC2024-0011036

PATIENT
  Age: 51 Year
  Sex: Male

DRUGS (1)
  1. REMICADE [Suspect]
     Active Substance: INFLIXIMAB
     Indication: Immune-mediated enterocolitis
     Dosage: UNK
     Route: 041

REACTIONS (4)
  - Respiratory failure [Fatal]
  - COVID-19 [Unknown]
  - Acute respiratory distress syndrome [Unknown]
  - Off label use [Unknown]
